FAERS Safety Report 9695688 (Version 1)
Quarter: 2013Q4

REPORT INFORMATION
  Report Type: Spontaneous
  Country: US (occurrence: None)
  Receive Date: 20131118
  Receipt Date: 20131118
  Transmission Date: 20140711
  Serious: Yes (Life-Threatening, Disabling, Other)
  Sender: FDA-Public Use
  Company Number: None

PATIENT
  Age: 47 Year
  Sex: Female
  Weight: 72.58 kg

DRUGS (1)
  1. LIPITOR [Suspect]
     Indication: BLOOD TRIGLYCERIDES INCREASED
     Route: 048

REACTIONS (1)
  - Diabetes mellitus [None]
